FAERS Safety Report 7302008-5 (Version None)
Quarter: 2011Q1

REPORT INFORMATION
  Report Type: 
  Country: None (occurrence: None)
  Receive Date: 20110208
  Receipt Date: 20110124
  Transmission Date: 20110831
  Serious: Yes (Hospitalization)
  Sender: FDA-Public Use
  Company Number: 2011SP000263

PATIENT
  Age: 81 Year
  Sex: Male
  Weight: 74.8 kg

DRUGS (7)
  1. BROVANA [Suspect]
     Indication: ASTHMA
     Dosage: 15 UG/2ML;BID;INHALATION
     Route: 055
     Dates: start: 20100101
  2. BROVANA [Suspect]
     Indication: EMPHYSEMA
     Dosage: 15 UG/2ML;BID;INHALATION
     Route: 055
     Dates: start: 20100101
  3. BROVANA [Suspect]
     Indication: CHRONIC OBSTRUCTIVE PULMONARY DISEASE
     Dosage: 15 UG/2ML;BID;INHALATION
     Route: 055
     Dates: start: 20100101
  4. BUDESONIDE [Suspect]
     Indication: CHRONIC OBSTRUCTIVE PULMONARY DISEASE
     Dosage: BID;INHALATION
     Route: 055
     Dates: start: 20100101
  5. BUDESONIDE [Suspect]
     Indication: EMPHYSEMA
     Dosage: BID;INHALATION
     Route: 055
     Dates: start: 20100101
  6. BUDESONIDE [Suspect]
     Indication: ASTHMA
     Dosage: BID;INHALATION
     Route: 055
     Dates: start: 20100101
  7. PREV MEDS [Concomitant]

REACTIONS (2)
  - DRY MOUTH [None]
  - APPENDICITIS PERFORATED [None]
